FAERS Safety Report 6373932-5 (Version None)
Quarter: 2009Q3

REPORT INFORMATION
  Report Type: 
  Country: None (occurrence: None)
  Receive Date: 20090924
  Receipt Date: 20090526
  Transmission Date: 20100115
  Serious: Yes (Other)
  Sender: FDA-Public Use
  Company Number: US-ASTRAZENECA-2009UW13341

PATIENT
  Sex: Female
  Weight: 54.4 kg

DRUGS (3)
  1. SEROQUEL [Suspect]
     Dosage: 400MG
     Route: 048
  2. LISINOPRIL [Concomitant]
     Route: 048
  3. CYMBALTA [Concomitant]

REACTIONS (1)
  - BLOOD PRESSURE DECREASED [None]
